FAERS Safety Report 8505720-5 (Version None)
Quarter: 2012Q3

REPORT INFORMATION
  Report Type: 
  Country: None (occurrence: None)
  Receive Date: 20120712
  Receipt Date: 20120709
  Transmission Date: 20120928
  Serious: Yes (Death, Other)
  Sender: FDA-Public Use
  Company Number: GB-CELGENEUS-167-C5013-11021889

PATIENT
  Sex: Male
  Weight: 100 kg

DRUGS (2)
  1. LENALIDOMIDE [Suspect]
     Route: 048
     Dates: end: 20101115
  2. LENALIDOMIDE [Suspect]
     Route: 048
     Dates: start: 20101012

REACTIONS (1)
  - LUNG ADENOCARCINOMA [None]
